FAERS Safety Report 6495744-4 (Version None)
Quarter: 2009Q4

REPORT INFORMATION
  Report Type: 
  Country: None (occurrence: None)
  Receive Date: 20091214
  Receipt Date: 20090811
  Transmission Date: 20100525
  Serious: No
  Sender: FDA-Public Use
  Company Number: US-BRISTOL-MYERS SQUIBB COMPANY-14732283

PATIENT
  Age: 8 Year
  Sex: Male

DRUGS (4)
  1. ABILIFY [Suspect]
     Indication: MOOD SWINGS
     Route: 048
  2. ABILIFY [Suspect]
     Indication: AGGRESSION
     Route: 048
  3. LEXAPRO [Suspect]
     Indication: MOOD SWINGS
  4. TENEX [Suspect]
     Indication: ATTENTION DEFICIT/HYPERACTIVITY DISORDER
     Dosage: TENEX .5 AM.

REACTIONS (1)
  - SKIN HYPERPIGMENTATION [None]
